FAERS Safety Report 6568368-8 (Version None)
Quarter: 2010Q1

REPORT INFORMATION
  Report Type: 
  Country: None (occurrence: None)
  Receive Date: 20100129
  Receipt Date: 20100125
  Transmission Date: 20100710
  Serious: Yes (Death)
  Sender: FDA-Public Use
  Company Number: 2009US004374

PATIENT
  Age: 92 Year
  Sex: Male

DRUGS (5)
  1. LEXISCAN [Suspect]
     Indication: SCAN MYOCARDIAL PERFUSION
     Dosage: IV NOS
     Route: 042
     Dates: start: 20091130, end: 20091130
  2. TOPROL-XL [Concomitant]
  3. NORVASC [Concomitant]
  4. OSCAL (CALCIUM) [Concomitant]
  5. TIMOLOL MALEATE [Concomitant]

REACTIONS (2)
  - ACUTE MYOCARDIAL INFARCTION [None]
  - CARDIAC ARREST [None]
